FAERS Safety Report 4289562-5 (Version None)
Quarter: 2004Q1

REPORT INFORMATION
  Report Type: 
  Country: None (occurrence: None)
  Receive Date: 20040209
  Receipt Date: 20040209
  Transmission Date: 20041129
  Serious: Yes (Hospitalization)
  Sender: FDA-Public Use
  Company Number: None

PATIENT
  Age: 78 Year
  Sex: Female
  Weight: 61 kg

DRUGS (3)
  1. GEODON [Suspect]
     Indication: ACUTE PSYCHOSIS
     Dosage: 20 MG STAT INTRAMUSCULAR
     Route: 030
     Dates: start: 20030116, end: 20030116
  2. GEODON [Suspect]
     Indication: PARANOIA
     Dosage: 60 MG BID ORAL
     Route: 048
     Dates: start: 20030117, end: 20030118
  3. TOPROL-XL [Concomitant]

REACTIONS (1)
  - COMA [None]
